FAERS Safety Report 6433457-5 (Version None)
Quarter: 2009Q4

REPORT INFORMATION
  Report Type: 
  Country: None (occurrence: None)
  Receive Date: 20091106
  Receipt Date: 20091106
  Transmission Date: 20100525
  Serious: Yes (Hospitalization)
  Sender: FDA-Public Use
  Company Number: None

PATIENT
  Age: 53 Year
  Sex: Female
  Weight: 71 kg

DRUGS (3)
  1. HERCEPTIN [Suspect]
     Indication: BREAST CANCER
     Dosage: -6MG/KG LOADING DOSE- = 420 MG IV DRIP
     Route: 041
     Dates: start: 20091027, end: 20091027
  2. CARBOPLATIN [Suspect]
     Dosage: AUC 6 = 750 MG IV DRIP
     Route: 041
     Dates: start: 20091027, end: 20091027
  3. TAXOTERE [Concomitant]

REACTIONS (4)
  - CYSTITIS [None]
  - OBSTRUCTIVE UROPATHY [None]
  - RENAL HAEMORRHAGE [None]
  - THROMBOSIS [None]
